FAERS Safety Report 9961565 (Version 1)
Quarter: 2014Q1

REPORT INFORMATION
  Report Type: Spontaneous
  Country: US (occurrence: None)
  Receive Date: 20140304
  Receipt Date: 20140304
  Transmission Date: 20141002
  Serious: Yes (Hospitalization)
  Sender: FDA-Public Use
  Company Number: None

PATIENT
  Age: 71 Year
  Sex: Male
  Weight: 98.2 kg

DRUGS (1)
  1. AMOXICILLIN [Suspect]
     Indication: CELLULITIS
     Route: 048
     Dates: start: 20131210, end: 20131218

REACTIONS (5)
  - Erythema [None]
  - Rash [None]
  - Rash pruritic [None]
  - Vision blurred [None]
  - Photophobia [None]
